FAERS Safety Report 5200002-1 (Version None)
Quarter: 2007Q1

REPORT INFORMATION
  Report Type: 
  Country: None (occurrence: None)
  Receive Date: 20070105
  Receipt Date: 20061225
  Transmission Date: 20070707
  Serious: Yes (Other)
  Sender: FDA-Public Use
  Company Number: PHBS2006JP19372

PATIENT
  Age: 43 Year
  Sex: Female

DRUGS (3)
  1. NEORAL [Suspect]
     Indication: PSORIATIC ARTHROPATHY
     Dosage: 50 MG, BID
     Route: 048
     Dates: start: 20061205
  2. MUCOSTA [Concomitant]
     Indication: GASTRITIS
     Dosage: 300 MG/D
     Route: 048
  3. LAC B [Concomitant]
     Dosage: 3 G/D
     Route: 048

REACTIONS (8)
  - BLOOD BETA-D-GLUCAN ABNORMAL [None]
  - C-REACTIVE PROTEIN INCREASED [None]
  - CHILLS [None]
  - INFECTION [None]
  - INFLAMMATION [None]
  - LYMPHOCYTE COUNT DECREASED [None]
  - NEUTROPHIL PERCENTAGE INCREASED [None]
  - PYREXIA [None]
